FAERS Safety Report 13759571 (Version 2)
Quarter: 2018Q3

REPORT INFORMATION
  Report Type: Spontaneous
  Country: US (occurrence: US)
  Receive Date: 20170717
  Receipt Date: 20180711
  Transmission Date: 20181010
  Serious: No
  Sender: FDA-Public Use
  Company Number: US-ENDO PHARMACEUTICALS INC-2017-003260

PATIENT
  Sex: Male
  Weight: 83.9 kg

DRUGS (9)
  1. CLONIDINE HYDROCHLORIDE TABLETS 0.2 MG [Concomitant]
     Active Substance: CLONIDINE HYDROCHLORIDE
     Indication: HYPERTENSION
  2. HUMAN CHORIONIC GONADOTROPIN [Concomitant]
     Active Substance: GONADOTROPHIN, CHORIONIC
     Indication: HYPOGONADISM
  3. EDEX [Suspect]
     Active Substance: ALPROSTADIL
     Indication: ERECTILE DYSFUNCTION
     Dosage: 20 ?G, UNKNOWN
     Route: 017
  4. EDEX [Suspect]
     Active Substance: ALPROSTADIL
     Dosage: 15 ?G, UNKNOWN
     Route: 017
  5. TESTOSTERONE CYPIONATE. [Concomitant]
     Active Substance: TESTOSTERONE CYPIONATE
     Indication: HYPOGONADISM
  6. EDEX [Suspect]
     Active Substance: ALPROSTADIL
     Dosage: 10 ?G, UNKNOWN
     Route: 017
     Dates: start: 201609
  7. ARIMIDEX [Concomitant]
     Active Substance: ANASTROZOLE
     Indication: HYPOGONADISM
  8. VALIUM [Concomitant]
     Active Substance: DIAZEPAM
     Indication: ANXIETY DISORDER
  9. PROPRANOLOL [Concomitant]
     Active Substance: PROPRANOLOL HYDROCHLORIDE
     Indication: HYPERTENSION

REACTIONS (3)
  - Injection site discolouration [Recovering/Resolving]
  - Drug ineffective [Not Recovered/Not Resolved]
  - Memory impairment [Not Recovered/Not Resolved]

NARRATIVE: CASE EVENT DATE: 2017
